FAERS Safety Report 7879638-5 (Version None)
Quarter: 2011Q4

REPORT INFORMATION
  Report Type: 
  Country: None (occurrence: None)
  Receive Date: 20111101
  Receipt Date: 20111026
  Transmission Date: 20120403
  Serious: Yes (Death)
  Sender: FDA-Public Use
  Company Number: US-GLAXOSMITHKLINE-A0951286A

PATIENT
  Age: 82 Year
  Sex: Female

DRUGS (12)
  1. ALDACTONE [Concomitant]
  2. AROMASIN [Concomitant]
  3. IRON [Concomitant]
  4. ATENOLOL [Concomitant]
  5. GLYBURIDE [Concomitant]
  6. CALCIUM [Concomitant]
  7. LASIX [Concomitant]
  8. ADVAIR DISKUS 100/50 [Suspect]
     Indication: LUNG CANCER METASTATIC
     Route: 055
  9. COUMADIN [Concomitant]
  10. ZOCOR [Concomitant]
  11. SYNTHROID [Concomitant]
  12. VICODIN [Concomitant]

REACTIONS (1)
  - DEATH [None]
